FAERS Safety Report 11368526 (Version 1)
Quarter: 2015Q3

REPORT INFORMATION
  Report Type: Spontaneous
  Country: None (occurrence: None)
  Receive Date: 20150811
  Receipt Date: 20150811
  Transmission Date: 20151125
  Serious: No
  Sender: FDA-Public Use
  Company Number: None

PATIENT
  Age: 76 Year
  Sex: Male
  Weight: 92.08 kg

DRUGS (7)
  1. CLOPIDOGREL [Concomitant]
     Active Substance: CLOPIDOGREL BISULFATE
  2. STELARA [Suspect]
     Active Substance: USTEKINUMAB
     Indication: PSORIASIS
     Dosage: THREE MONTHLY; INTO STOMACH
  3. STELARA [Concomitant]
     Active Substance: USTEKINUMAB
  4. ELANTAN [Concomitant]
     Active Substance: ISOSORBIDE MONONITRATE
  5. ASPIRIN. [Concomitant]
     Active Substance: ASPIRIN
  6. AMLODIPINE [Concomitant]
     Active Substance: AMLODIPINE BESYLATE
  7. PERINDOPRIL [Concomitant]
     Active Substance: PERINDOPRIL

REACTIONS (3)
  - Fatigue [None]
  - Somnolence [None]
  - Dyspnoea [None]

NARRATIVE: CASE EVENT DATE: 20150809
